FAERS Safety Report 9297004 (Version 1)
Quarter: 2013Q2

REPORT INFORMATION
  Report Type: Report from Study
  Country: BR (occurrence: BR)
  Receive Date: 20130519
  Receipt Date: 20130519
  Transmission Date: 20140414
  Serious: Yes (Other)
  Sender: FDA-Public Use
  Company Number: BR-US-EMD SERONO, INC.-7211275

PATIENT
  Sex: Female

DRUGS (1)
  1. REBIF [Suspect]
     Indication: RELAPSING-REMITTING MULTIPLE SCLEROSIS
     Dates: start: 20110102

REACTIONS (4)
  - Haemorrhage [Recovered/Resolved]
  - Spinal disorder [Unknown]
  - Back pain [Recovering/Resolving]
  - Gait disturbance [Unknown]
